FAERS Safety Report 10492640 (Version 1)
Quarter: 2014Q4

REPORT INFORMATION
  Report Type: Spontaneous
  Country: US (occurrence: US)
  Receive Date: 20141002
  Receipt Date: 20141002
  Transmission Date: 20150528
  Serious: No
  Sender: FDA-Public Use
  Company Number: US-GLAXOSMITHKLINE-A1073481A

PATIENT
  Age: 90 Year
  Sex: Female

DRUGS (17)
  1. RESTORIL [Concomitant]
     Active Substance: TEMAZEPAM
  2. CENTRUM SILVER [Concomitant]
     Active Substance: VITAMINS
  3. ZOCOR [Concomitant]
     Active Substance: SIMVASTATIN
  4. METOPROLOL [Concomitant]
     Active Substance: METOPROLOL
  5. ASPIRIN. [Concomitant]
     Active Substance: ASPIRIN
  6. NIFEDIAC CC [Concomitant]
     Active Substance: NIFEDIPINE
  7. FLUORIL [Concomitant]
  8. POTASSIUM [Concomitant]
     Active Substance: POTASSIUM
  9. CITRACAL [Concomitant]
     Active Substance: CALCIUM CITRATE
  10. PLAVIX [Concomitant]
     Active Substance: CLOPIDOGREL BISULFATE
  11. PREDNISONE. [Concomitant]
     Active Substance: PREDNISONE
  12. VITAMINS [Concomitant]
     Active Substance: VITAMINS
  13. FISH OIL [Concomitant]
     Active Substance: FISH OIL
  14. ADVAIR HFA [Suspect]
     Active Substance: FLUTICASONE PROPIONATE\SALMETEROL XINAFOATE
     Indication: WHEEZING
     Dosage: 1PUFF TWICE PER DAY
     Route: 055
     Dates: start: 201402
  15. TAMOXIFEN [Concomitant]
     Active Substance: TAMOXIFEN
  16. SULFAMETHOXAZOLE-TRIMETHOPRIM (SMZ) [Concomitant]
     Active Substance: SULFAMETHOXAZOLE\TRIMETHOPRIM
  17. CALCIUM [Concomitant]
     Active Substance: CALCIUM

REACTIONS (2)
  - Dysphonia [Unknown]
  - Buccal mucosal roughening [Unknown]
